FAERS Safety Report 25145026 (Version 1)
Quarter: 2025Q2

REPORT INFORMATION
  Report Type: Spontaneous
  Country: FR (occurrence: FR)
  Receive Date: 20250401
  Receipt Date: 20250401
  Transmission Date: 20250717
  Serious: Yes (Hospitalization)
  Sender: RHYTHM PHARMACEUTICALS
  Company Number: FR-Rhythm Pharmaceuticals, Inc.-2024RHM000072

PATIENT
  Sex: Male
  Weight: 102 kg

DRUGS (7)
  1. IMCIVREE [Suspect]
     Active Substance: SETMELANOTIDE
     Indication: Laurence-Moon-Bardet-Biedl syndrome
     Route: 058
     Dates: start: 20230811
  2. IMCIVREE [Suspect]
     Active Substance: SETMELANOTIDE
     Route: 058
     Dates: start: 20230911
  3. IMCIVREE [Suspect]
     Active Substance: SETMELANOTIDE
     Route: 058
     Dates: start: 20240202
  4. IMCIVREE [Suspect]
     Active Substance: SETMELANOTIDE
     Route: 058
     Dates: start: 20240814
  5. IMCIVREE [Suspect]
     Active Substance: SETMELANOTIDE
     Route: 058
     Dates: start: 20250210
  6. IMCIVREE [Suspect]
     Active Substance: SETMELANOTIDE
     Route: 058
  7. VICTOZA [Concomitant]
     Active Substance: LIRAGLUTIDE
     Indication: Type 2 diabetes mellitus
     Route: 065
     Dates: start: 202211

REACTIONS (3)
  - Hospitalisation [Unknown]
  - Subcutaneous abscess [Unknown]
  - Fungal infection [Unknown]

NARRATIVE: CASE EVENT DATE: 20241201
